FAERS Safety Report 17345413 (Version 2)
Quarter: 2020Q1

REPORT INFORMATION
  Report Type: Spontaneous
  Country: FR (occurrence: FR)
  Receive Date: 20200129
  Receipt Date: 20200211
  Transmission Date: 20200409
  Serious: Yes (Other)
  Sender: FDA-Public Use
  Company Number: FR-MYLANLABS-2020M1010413

PATIENT
  Age: 64 Year
  Sex: Female
  Weight: 49 kg

DRUGS (16)
  1. EFFERALGAN [Suspect]
     Active Substance: ACETAMINOPHEN
     Indication: HEADACHE
  2. EFFERALGAN [Suspect]
     Active Substance: ACETAMINOPHEN
     Indication: PAIN
  3. EFFERALGAN [Suspect]
     Active Substance: ACETAMINOPHEN
     Indication: MUSCULOSKELETAL PAIN
  4. ZOLEDRONIC ACID [Suspect]
     Active Substance: ZOLEDRONIC ACID
     Indication: OSTEOPOROSIS
     Dosage: 1 DF, Q12MO
     Route: 065
  5. LEVOTHYROX [Concomitant]
     Active Substance: LEVOTHYROXINE
     Indication: PRODUCT USED FOR UNKNOWN INDICATION
     Dosage: UNK
     Route: 065
     Dates: start: 1999
  6. LEVOTHYROX [Concomitant]
     Active Substance: LEVOTHYROXINE
     Dosage: 75 OT (HALF PER DAY)
     Route: 065
     Dates: start: 2000
  7. DEROXAT [Concomitant]
     Active Substance: PAROXETINE HYDROCHLORIDE
     Dosage: 25 MG (2/4 PER DAY)
     Route: 065
     Dates: start: 2014
  8. EFFERALGAN [Suspect]
     Active Substance: ACETAMINOPHEN
     Indication: MYALGIA
  9. INDOCOLLYRE [Suspect]
     Active Substance: INDOMETHACIN
     Indication: EYE PAIN
     Dosage: 3 DRP, QD (0.1 PERCENT)
     Route: 065
     Dates: start: 20191025, end: 20191116
  10. DEROXAT [Concomitant]
     Active Substance: PAROXETINE HYDROCHLORIDE
     Indication: PRODUCT USED FOR UNKNOWN INDICATION
     Dosage: UNK
     Route: 065
     Dates: start: 1999
  11. ZOLEDRONIC ACID [Suspect]
     Active Substance: ZOLEDRONIC ACID
     Dosage: 5 MG, Q12MO
     Route: 042
     Dates: start: 20191002
  12. EFFERALGAN [Suspect]
     Active Substance: ACETAMINOPHEN
     Indication: INFLUENZA LIKE ILLNESS
     Dosage: UNK
  13. EFFERALGAN [Suspect]
     Active Substance: ACETAMINOPHEN
     Indication: PYREXIA
  14. VITAMIN D                          /00107901/ [Concomitant]
     Active Substance: ERGOCALCIFEROL
     Indication: PRODUCT USED FOR UNKNOWN INDICATION
     Dosage: UNK DRP
     Route: 065
  15. VALIUM [Suspect]
     Active Substance: DIAZEPAM
     Indication: PRODUCT USED FOR UNKNOWN INDICATION
     Dosage: 3 DRP (IN THE EVENING)
     Route: 065
  16. EFFERALGAN [Suspect]
     Active Substance: ACETAMINOPHEN
     Indication: NECK PAIN

REACTIONS (18)
  - Syncope [Unknown]
  - Malaise [Unknown]
  - Myalgia [Unknown]
  - Gastric disorder [Unknown]
  - Ocular hyperaemia [Recovered/Resolved]
  - Eye inflammation [Recovered/Resolved]
  - Fatigue [Unknown]
  - Influenza like illness [Recovered/Resolved]
  - Eye pain [Recovered/Resolved]
  - Stress [Unknown]
  - Musculoskeletal pain [Unknown]
  - Neck pain [Unknown]
  - Nervousness [Unknown]
  - Dyspnoea [Unknown]
  - Dizziness [Recovered/Resolved]
  - Headache [Unknown]
  - Pyrexia [Unknown]
  - Pain [Unknown]

NARRATIVE: CASE EVENT DATE: 20191003
